FAERS Safety Report 5894332-8 (Version None)
Quarter: 2008Q3

REPORT INFORMATION
  Report Type: 
  Country: None (occurrence: None)
  Receive Date: 20080922
  Receipt Date: 20080911
  Transmission Date: 20090109
  Serious: Yes (Hospitalization)
  Sender: FDA-Public Use
  Company Number: 2008-03329

PATIENT
  Age: 72 Year
  Sex: Male
  Weight: 99 kg

DRUGS (2)
  1. VELCADE [Suspect]
     Indication: MANTLE CELL LYMPHOMA
     Dosage: 1.3 MG/M2, INTRAVENOUS
     Route: 042
     Dates: start: 20080603, end: 20080822
  2. REVLIMID [Suspect]
     Indication: MANTLE CELL LYMPHOMA
     Dosage: 20 MG, ORAL
     Route: 048
     Dates: start: 20080603, end: 20080825

REACTIONS (7)
  - ABDOMINAL INFECTION [None]
  - DEVICE RELATED INFECTION [None]
  - ERYTHEMA [None]
  - FISTULA [None]
  - SKIN ODOUR ABNORMAL [None]
  - SMALL INTESTINAL RESECTION [None]
  - SWELLING [None]
